FAERS Safety Report 4467812-X (Version None)
Quarter: 2004Q4

REPORT INFORMATION
  Report Type: 
  Country: None (occurrence: None)
  Receive Date: 20041005
  Receipt Date: 20040929
  Transmission Date: 20050328
  Serious: Yes (Hospitalization)
  Sender: FDA-Public Use
  Company Number: 006#3#2004-00029

PATIENT
  Age: 90 Year
  Sex: Female

DRUGS (6)
  1. CORDIPATCH (GLYCERYL TRINITRATE) [Suspect]
     Indication: ANGINA PECTORIS
     Dosage: 1.10 MCG (10MCG 1 IN 1 DAY(S))
     Route: 062
     Dates: start: 20040831
  2. LASIX [Concomitant]
  3. COZAAR [Concomitant]
  4. TORENTAL [PENTOXIFYLLINE] [Concomitant]
  5. PLAVIX [Concomitant]
  6. LEMOXIL (BROMAZAPEM) [Concomitant]

REACTIONS (7)
  - BLOOD CHLORIDE DECREASED [None]
  - BLOOD SODIUM DECREASED [None]
  - DRUG INTERACTION [None]
  - HYPOTENSION [None]
  - LOSS OF CONSCIOUSNESS [None]
  - MALAISE [None]
  - TROPONIN T INCREASED [None]
